FAERS Safety Report 4290979-3 (Version None)
Quarter: 2004Q1

REPORT INFORMATION
  Report Type: 
  Country: None (occurrence: None)
  Receive Date: 20040211
  Receipt Date: 20031020
  Transmission Date: 20041129
  Serious: No
  Sender: FDA-Public Use
  Company Number: US-GLAXOSMITHKLINE-A0431125A

PATIENT
  Age: 59 Year
  Sex: Female

DRUGS (4)
  1. PAXIL [Suspect]
     Indication: PANIC DISORDER
     Route: 048
  2. LEXAPRO [Concomitant]
  3. ZOCOR [Concomitant]
  4. ZETIA [Concomitant]

REACTIONS (3)
  - FEELING JITTERY [None]
  - RESTLESSNESS [None]
  - WEIGHT INCREASED [None]
